FAERS Safety Report 7568760-9 (Version None)
Quarter: 2011Q2

REPORT INFORMATION
  Report Type: 
  Country: None (occurrence: None)
  Receive Date: 20110623
  Receipt Date: 20110616
  Transmission Date: 20111010
  Serious: Yes (Hospitalization)
  Sender: FDA-Public Use
  Company Number: DE-ABBOTT-11P-062-0734239-00

PATIENT
  Age: 73 Year
  Sex: Male
  Weight: 84 kg

DRUGS (8)
  1. MINIPARA [Concomitant]
     Dates: start: 20100514
  2. RENAGEL 800 [Concomitant]
     Indication: PRODUCT USED FOR UNKNOWN INDICATION
  3. MINIPARA [Concomitant]
     Indication: PRODUCT USED FOR UNKNOWN INDICATION
     Dates: start: 20080604, end: 20080825
  4. ZEMPLAR [Suspect]
     Indication: SECONDARY HYPERTHYROIDISM
     Dates: start: 20090907, end: 20101126
  5. ZEMPLAR [Suspect]
     Indication: PRODUCT USED FOR UNKNOWN INDICATION
     Dates: start: 20101126
  6. MINIPARA [Concomitant]
     Dates: start: 20100122, end: 20100322
  7. DEKRISTOL [Concomitant]
     Indication: PRODUCT USED FOR UNKNOWN INDICATION
  8. NEO RECORMON [Concomitant]
     Indication: PRODUCT USED FOR UNKNOWN INDICATION
     Dosage: 20000 DAILY PER WEEK
     Route: 042

REACTIONS (1)
  - DIABETIC GANGRENE [None]
